FAERS Safety Report 15526473 (Version 1)
Quarter: 2018Q4

REPORT INFORMATION
  Report Type: Spontaneous
  Country: FR (occurrence: FR)
  Receive Date: 20181018
  Receipt Date: 20181018
  Transmission Date: 20190205
  Serious: Yes (Hospitalization)
  Sender: FDA-Public Use
  Company Number: FR-PFIZER INC-2018414067

PATIENT
  Age: 79 Year
  Sex: Male

DRUGS (7)
  1. ALPRAZOLAM. [Suspect]
     Active Substance: ALPRAZOLAM
     Indication: ANXIOLYTIC THERAPY
     Dosage: 1 DF, 1X/DAY
     Route: 048
     Dates: end: 20180819
  2. AMLOR [Concomitant]
     Active Substance: AMLODIPINE BESYLATE
     Dosage: UNK
  3. XARELTO [Concomitant]
     Active Substance: RIVAROXABAN
     Dosage: UNK
  4. PARACETAMOL [Concomitant]
     Active Substance: ACETAMINOPHEN
     Dosage: UNK
  5. FLECAINE [Concomitant]
     Active Substance: FLECAINIDE
     Dosage: UNK
  6. PAROXETINE HYDROCHLORIDE. [Concomitant]
     Active Substance: PAROXETINE HYDROCHLORIDE
     Dosage: UNK
  7. TANGANIL [Concomitant]
     Active Substance: ACETYLLEUCINE
     Dosage: UNK

REACTIONS (2)
  - Fall [Recovered/Resolved with Sequelae]
  - Hypotonia [Recovered/Resolved]

NARRATIVE: CASE EVENT DATE: 20180819
